FAERS Safety Report 11008338 (Version 2)
Quarter: 2015Q2

REPORT INFORMATION
  Report Type: Report from Study
  Country: DE (occurrence: DE)
  Receive Date: 20150410
  Receipt Date: 20150427
  Transmission Date: 20150821
  Serious: Yes (Hospitalization, Other)
  Sender: FDA-Public Use
  Company Number: DE-BIOGENIDEC-2015BI043620

PATIENT
  Age: 32 Year
  Sex: Female

DRUGS (4)
  1. FERRO SANOL DUODENAL [Concomitant]
     Active Substance: FERROUS SULFATE\GLYCINE
  2. EUTHYROX [Concomitant]
     Active Substance: LEVOTHYROXINE SODIUM
  3. TYSABRI [Suspect]
     Active Substance: NATALIZUMAB
     Indication: MULTIPLE SCLEROSIS
     Route: 042
     Dates: start: 20111228
  4. GAMUNEX [Concomitant]
     Active Substance: HUMAN IMMUNOGLOBULIN G
     Indication: MULTIPLE SCLEROSIS
     Dates: start: 201405

REACTIONS (4)
  - Cholestasis of pregnancy [Unknown]
  - HELLP syndrome [Unknown]
  - Maternal exposure during pregnancy [Unknown]
  - Placental insufficiency [Unknown]

NARRATIVE: CASE EVENT DATE: 20141128
